FAERS Safety Report 19120473 (Version 1)
Quarter: 2021Q2

REPORT INFORMATION
  Report Type: Other
  Country: FR (occurrence: FR)
  Receive Date: 20210412
  Receipt Date: 20210412
  Transmission Date: 20210717
  Serious: Yes (Other)
  Sender: FDA-Public Use
  Company Number: FR-ASPEN-GLO2021FR002071

PATIENT

DRUGS (23)
  1. PREDNISOLONE. [Suspect]
     Active Substance: PREDNISOLONE
     Dosage: 2 MG/KG PER DAY
     Route: 065
  2. FLUDARABINE [Suspect]
     Active Substance: FLUDARABINE PHOSPHATE
     Indication: STILL^S DISEASE
     Dosage: 160 MG/M2
     Route: 065
  3. THALIDOMIDE [Suspect]
     Active Substance: THALIDOMIDE
     Dosage: 50 MG/DAY
     Route: 065
  4. RITUXIMAB. [Suspect]
     Active Substance: RITUXIMAB
     Indication: STILL^S DISEASE
     Dosage: 375 MG/M2
     Route: 065
  5. BUSULFAN. [Suspect]
     Active Substance: BUSULFAN
     Indication: STILL^S DISEASE
     Dosage: AUC OF 25,638 MICROM/MIN
     Route: 065
  6. PREDNISOLONE. [Suspect]
     Active Substance: PREDNISOLONE
     Indication: STILL^S DISEASE
     Dosage: 1 MG/KG PER DAY, TAPERED
     Route: 065
  7. ANAKINRA [Suspect]
     Active Substance: ANAKINRA
     Indication: STILL^S DISEASE
     Route: 065
  8. INFLIXIMAB [Suspect]
     Active Substance: INFLIXIMAB
     Indication: GRAFT VERSUS HOST DISEASE IN GASTROINTESTINAL TRACT
     Dosage: 75 MG/ 4 WEEKS
     Route: 065
  9. INFLIXIMAB [Suspect]
     Active Substance: INFLIXIMAB
     Indication: STILL^S DISEASE
     Dosage: FOR GRADE III GASTROINTESTINAL GVHDUNK
     Route: 065
  10. METHOTREXATE. [Suspect]
     Active Substance: METHOTREXATE
     Dosage: 5 MG/WEEK
     Route: 065
  11. METHYLPREDNISOLONE. [Suspect]
     Active Substance: METHYLPREDNISOLONE
     Indication: STILL^S DISEASE
     Route: 065
  12. INFLIXIMAB [Suspect]
     Active Substance: INFLIXIMAB
     Dosage: UNK
     Route: 065
  13. MYCOPHENOLATE MOFETIL. [Concomitant]
     Active Substance: MYCOPHENOLATE MOFETIL
     Indication: PROPHYLAXIS AGAINST GRAFT VERSUS HOST DISEASE
     Dosage: ON DAY 5
     Route: 065
  14. INDOMETHACIN. [Suspect]
     Active Substance: INDOMETHACIN
     Indication: STILL^S DISEASE
     Dosage: 25 MG/M2, QD
     Route: 065
  15. THALIDOMIDE [Suspect]
     Active Substance: THALIDOMIDE
     Indication: STILL^S DISEASE
     Route: 065
  16. CANAKINUMAB. [Suspect]
     Active Substance: CANAKINUMAB
     Indication: STILL^S DISEASE
     Route: 065
  17. TOCILIZUMAB. [Suspect]
     Active Substance: TOCILIZUMAB
     Indication: STILL^S DISEASE
     Route: 065
  18. INDOMETHACIN. [Suspect]
     Active Substance: INDOMETHACIN
     Dosage: UNK
     Route: 065
  19. CYCLOSPORIN [Concomitant]
     Active Substance: CYCLOSPORINE
     Indication: PROPHYLAXIS AGAINST GRAFT VERSUS HOST DISEASE
     Dosage: ON DAY 5
     Route: 065
  20. METHOTREXATE. [Suspect]
     Active Substance: METHOTREXATE
     Indication: STILL^S DISEASE
     Route: 065
  21. ADALIMUMAB [Suspect]
     Active Substance: ADALIMUMAB
     Indication: STILL^S DISEASE
     Route: 065
  22. CYCLOPHOSPHAMIDE. [Concomitant]
     Active Substance: CYCLOPHOSPHAMIDE
     Indication: PROPHYLAXIS AGAINST GRAFT VERSUS HOST DISEASE
     Dosage: 50 MG/KG DAY 3 AND 4
     Route: 065
  23. ALEMTUZUMAB [Suspect]
     Active Substance: ALEMTUZUMAB
     Indication: STILL^S DISEASE
     Dosage: 0.5 MG/KG
     Route: 065

REACTIONS (32)
  - Hypothyroidism [Unknown]
  - Clostridium difficile colitis [Recovered/Resolved]
  - Growth retardation [Unknown]
  - Herpes zoster infection neurological [Unknown]
  - Condition aggravated [Unknown]
  - Acute graft versus host disease in skin [Recovering/Resolving]
  - Drug ineffective for unapproved indication [Unknown]
  - Aplasia [Unknown]
  - Focal nodular hyperplasia [Unknown]
  - Hypertension [Unknown]
  - Secondary adrenocortical insufficiency [Unknown]
  - Immune thrombocytopenia [Recovered/Resolved]
  - Autoimmune thyroiditis [Unknown]
  - Lung disorder [Recovered/Resolved]
  - Product use in unapproved indication [Unknown]
  - Off label use [Unknown]
  - Toxicity to various agents [Unknown]
  - Obliterative bronchiolitis [Recovered/Resolved]
  - Red blood cell sedimentation rate increased [Unknown]
  - Actinomycotic sepsis [Unknown]
  - Osteopenia [Unknown]
  - Thrombocytopenia [Unknown]
  - C-reactive protein increased [Unknown]
  - Arthralgia [Unknown]
  - Cellulitis staphylococcal [Unknown]
  - Inflammation [Unknown]
  - Vitiligo [Unknown]
  - Herpes zoster [Unknown]
  - Cushingoid [Unknown]
  - Graft versus host disease in gastrointestinal tract [Recovered/Resolved]
  - Hepatic cytolysis [Unknown]
  - Joint effusion [Recovered/Resolved]
